FAERS Safety Report 7797680-X (Version None)
Quarter: 2011Q4

REPORT INFORMATION
  Report Type: 
  Country: None (occurrence: None)
  Receive Date: 20111005
  Receipt Date: 20111003
  Transmission Date: 20120403
  Serious: Yes (Other)
  Sender: FDA-Public Use
  Company Number: PHHY2011NL67537

PATIENT
  Sex: Male

DRUGS (6)
  1. ZOMETA [Suspect]
     Indication: PROSTATE CANCER
     Dosage: 4 MG/5ML (ONCE IN 28 DAYS)
     Route: 042
     Dates: start: 20081219
  2. ZOMETA [Suspect]
     Dosage: 4 MG/5ML ONCE PER 28 DAYS
     Dates: start: 20110726
  3. ZOMETA [Suspect]
     Dosage: 4 MG/5ML ONCE PER 28 DAYS
     Route: 042
     Dates: start: 20110822, end: 20110919
  4. ZOMETA [Suspect]
     Dosage: 4 MG/5ML ONCE PER 28 DAYS
     Dates: start: 20110628
  5. CHEMOTHERAPEUTICS [Concomitant]
     Dosage: UNK UKN, UNK
     Route: 065
  6. ZOMETA [Suspect]
     Dosage: 4 MG/5ML ONCE PER 28 DAYS
     Route: 042
     Dates: start: 20110919, end: 20110919

REACTIONS (6)
  - FATIGUE [None]
  - HYPOAESTHESIA [None]
  - GAIT DISTURBANCE [None]
  - ASTHENIA [None]
  - PAIN IN JAW [None]
  - GENERAL PHYSICAL HEALTH DETERIORATION [None]
